FAERS Safety Report 15247916 (Version 1)
Quarter: 2018Q3

REPORT INFORMATION
  Report Type: Spontaneous
  Country: CN (occurrence: CN)
  Receive Date: 20180807
  Receipt Date: 20180807
  Transmission Date: 20181010
  Serious: Yes (Other)
  Sender: FDA-Public Use
  Company Number: CN-ROCHE-2166248

PATIENT
  Age: 5 Year
  Sex: Male

DRUGS (1)
  1. LUCENTIS [Suspect]
     Active Substance: RANIBIZUMAB
     Indication: EXUDATIVE RETINOPATHY
     Dosage: 0.5 MG (0.05 ML)
     Route: 031

REACTIONS (4)
  - Disease recurrence [Not Recovered/Not Resolved]
  - Product use in unapproved indication [Unknown]
  - Exudative retinopathy [Not Recovered/Not Resolved]
  - Subretinal fluid [Not Recovered/Not Resolved]
